FAERS Safety Report 18380496 (Version 1)
Quarter: 2020Q4

REPORT INFORMATION
  Report Type: Spontaneous
  Country: US (occurrence: US)
  Receive Date: 20201013
  Receipt Date: 20201013
  Transmission Date: 20210114
  Serious: Yes (Other)
  Sender: FDA-Public Use
  Company Number: US-ROCHE-2690329

PATIENT
  Age: 88 Year
  Sex: Female
  Weight: 86.4 kg

DRUGS (11)
  1. ASCORBIC ACID. [Concomitant]
     Active Substance: ASCORBIC ACID
     Dates: start: 20200709, end: 20200719
  2. CHOLECALCIFEROL [Concomitant]
     Active Substance: CHOLECALCIFEROL
     Dates: start: 20200709, end: 20200719
  3. XARELTO [Concomitant]
     Active Substance: RIVAROXABAN
     Dates: start: 20200709, end: 20200721
  4. TOPIRAMATE. [Concomitant]
     Active Substance: TOPIRAMATE
     Dates: start: 20200709, end: 20200721
  5. REMDESIVIR. [Suspect]
     Active Substance: REMDESIVIR
     Indication: COVID-19
     Route: 042
     Dates: start: 20200709, end: 20200709
  6. FAMOTIDINE. [Concomitant]
     Active Substance: FAMOTIDINE
     Dates: start: 20200709, end: 20200721
  7. PRIMIDONE. [Concomitant]
     Active Substance: PRIMIDONE
     Dates: start: 20200709, end: 20200721
  8. FUROSEMIDE. [Concomitant]
     Active Substance: FUROSEMIDE
     Dates: start: 20200709, end: 20200721
  9. TOCILIZUMAB. [Suspect]
     Active Substance: TOCILIZUMAB
     Indication: COVID-19
     Route: 042
     Dates: start: 20200710, end: 20200710
  10. DEXAMETHASONE. [Concomitant]
     Active Substance: DEXAMETHASONE
     Dates: start: 20200709, end: 20200718
  11. MEMANTINE. [Concomitant]
     Active Substance: MEMANTINE
     Dates: start: 20200709, end: 20200721

REACTIONS (1)
  - Hepatic enzyme increased [Recovered/Resolved]

NARRATIVE: CASE EVENT DATE: 20200713
